FAERS Safety Report 8398063-4 (Version None)
Quarter: 2012Q2

REPORT INFORMATION
  Report Type: 
  Country: None (occurrence: None)
  Receive Date: 20120531
  Receipt Date: 20120525
  Transmission Date: 20120825
  Serious: Yes (Other)
  Sender: FDA-Public Use
  Company Number: JP-JNJFOC-20100507005

PATIENT
  Sex: Female
  Weight: 65 kg

DRUGS (13)
  1. LOXONIN [Concomitant]
     Indication: RHEUMATOID ARTHRITIS
     Route: 048
  2. RHEUMATREX [Concomitant]
     Indication: RHEUMATOID ARTHRITIS
     Route: 048
  3. ALOSENN [Concomitant]
     Indication: CONSTIPATION
     Route: 048
  4. BORIC ACID [Concomitant]
     Indication: DRY EYE
     Route: 031
  5. FOLIAMIN [Concomitant]
     Indication: PROPHYLAXIS
     Route: 048
  6. MUCOSTA [Concomitant]
     Indication: PROPHYLAXIS
     Route: 048
  7. KETOPROFEN [Concomitant]
     Indication: RHEUMATOID ARTHRITIS
     Route: 062
     Dates: start: 20090706
  8. GOLIMUMAB [Suspect]
     Indication: RHEUMATOID ARTHRITIS
     Route: 058
     Dates: start: 20100412
  9. LANSOPRAZOLE [Concomitant]
     Route: 048
  10. CLOBETASOL PROPIONATE [Concomitant]
     Route: 061
  11. GOLIMUMAB [Suspect]
     Route: 058
     Dates: start: 20081222
  12. PETROLATUM SALICYLATE [Concomitant]
     Route: 061
  13. SODIUM HYALURONATE [Concomitant]
     Indication: RHINITIS ALLERGIC
     Route: 031

REACTIONS (1)
  - BREAST CANCER [None]
